FAERS Safety Report 6416315-1 (Version None)
Quarter: 2009Q4

REPORT INFORMATION
  Report Type: 
  Country: None (occurrence: None)
  Receive Date: 20091027
  Receipt Date: 20091016
  Transmission Date: 20100525
  Serious: Yes (Death)
  Sender: FDA-Public Use
  Company Number: FR-SANOFI-SYNTHELABO-A02200901527

PATIENT
  Sex: Female

DRUGS (26)
  1. KAYEXALATE [Suspect]
     Route: 064
     Dates: start: 20080701, end: 20080804
  2. KAYEXALATE [Suspect]
     Route: 064
     Dates: start: 20080805, end: 20081115
  3. NEXIUM [Suspect]
     Route: 064
     Dates: start: 20080701, end: 20080821
  4. NEXIUM [Suspect]
     Route: 064
     Dates: start: 20080822, end: 20081217
  5. UN-ALFA [Suspect]
     Route: 064
     Dates: start: 20080701, end: 20081017
  6. SPECIAFOLDINE [Suspect]
     Route: 064
     Dates: start: 20081008, end: 20081217
  7. LASILIX [Suspect]
     Route: 064
     Dates: start: 20080701, end: 20081215
  8. AMLOR [Suspect]
     Route: 064
     Dates: start: 20080701, end: 20080916
  9. AMLOR [Suspect]
     Route: 064
     Dates: start: 20080917, end: 20081215
  10. RUBOZINC [Suspect]
     Route: 064
     Dates: start: 20080829, end: 20080916
  11. ANTIBIOTREX [Suspect]
     Route: 064
     Dates: start: 20080829, end: 20080916
  12. ORELOX [Suspect]
     Route: 064
     Dates: start: 20081107, end: 20081117
  13. ATARAX [Suspect]
     Route: 064
     Dates: start: 20080818, end: 20081217
  14. RHINOFLUIMUCIL [Suspect]
     Route: 064
     Dates: start: 20081107, end: 20081110
  15. PIVALONE [Suspect]
     Route: 064
     Dates: start: 20081031, end: 20081107
  16. MUCOMYST [Suspect]
     Route: 064
     Dates: start: 20081107, end: 20081110
  17. RENAGEL [Suspect]
     Route: 064
     Dates: start: 20080828, end: 20081215
  18. NEORAL [Suspect]
     Route: 064
     Dates: start: 20080701, end: 20081021
  19. NEORAL [Suspect]
     Route: 064
     Dates: start: 20081022, end: 20081105
  20. NEORAL [Suspect]
     Route: 064
     Dates: start: 20081105, end: 20081217
  21. IMUREL [Suspect]
     Route: 064
     Dates: start: 20080701, end: 20080821
  22. VENOFER [Suspect]
     Dosage: UNK
     Route: 064
     Dates: start: 20080613, end: 20081016
  23. VENOFER [Suspect]
     Dosage: UNK
     Route: 064
     Dates: start: 20081017, end: 20081214
  24. VENOFER [Suspect]
     Dosage: 100 MCG TWO TIMES A WEEK
     Route: 064
     Dates: start: 20081215, end: 20081217
  25. ARANESP [Suspect]
     Dosage: 60 MCG ONE TIME A WEEK
     Route: 064
     Dates: start: 20080727, end: 20080928
  26. ARANESP [Suspect]
     Dosage: 80 MCG TWO TIMES A WEEK
     Route: 064
     Dates: start: 20080929, end: 20081217

REACTIONS (1)
  - STILLBIRTH [None]
